FAERS Safety Report 7752400-X (Version None)
Quarter: 2011Q3

REPORT INFORMATION
  Report Type: 
  Country: None (occurrence: None)
  Receive Date: 20110915
  Receipt Date: 20110905
  Transmission Date: 20111222
  Serious: Yes (Hospitalization)
  Sender: FDA-Public Use
  Company Number: PHHO2011FR15141

PATIENT
  Sex: Female

DRUGS (8)
  1. DOXORUBICIN HCL [Concomitant]
     Dosage: 95,50 MG
     Route: 042
     Dates: start: 20100422, end: 20100422
  2. IMATINIB MESYLATE [Suspect]
     Indication: ACUTE LYMPHOCYTIC LEUKAEMIA
     Dosage: 600 MG, QD
     Route: 048
     Dates: end: 20100805
  3. CYTARABINE [Concomitant]
  4. DEXAMETHASONE [Concomitant]
     Dosage: 40 MG, UNK
     Route: 048
     Dates: start: 20100419, end: 20100503
  5. VINCRISTINE [Concomitant]
     Dosage: 2 MG, UNK
     Route: 042
     Dates: start: 20100422, end: 20100429
  6. ONDANSETRON [Concomitant]
     Dosage: 8 MG, UNK
     Route: 042
     Dates: start: 20100419, end: 20100429
  7. METHOTREXATE [Concomitant]
  8. CYCLOPHOSPHAMIDE [Suspect]
     Indication: ACUTE LYMPHOCYTIC LEUKAEMIA
     Dosage: 579 MG/JOUR
     Route: 042
     Dates: start: 20100419, end: 20100421

REACTIONS (2)
  - FEBRILE NEUTROPENIA [None]
  - FEBRILE BONE MARROW APLASIA [None]
